FAERS Safety Report 6270045-8 (Version None)
Quarter: 2009Q3

REPORT INFORMATION
  Report Type: 
  Country: None (occurrence: None)
  Receive Date: 20090716
  Receipt Date: 20090707
  Transmission Date: 20100115
  Serious: Yes (Death)
  Sender: FDA-Public Use
  Company Number: NL-NAPPMUNDI-GBR-2009-0005315

PATIENT
  Sex: Male

DRUGS (4)
  1. OXYCONTIN [Suspect]
     Indication: PAIN
     Dosage: 10 MG, BID
     Route: 065
     Dates: start: 20080919, end: 20081003
  2. PARACETAMOL [Concomitant]
     Dosage: 500 MG, BID
     Route: 065
  3. PANTAZOL [Concomitant]
     Dosage: 40 MG, DAILY
     Route: 065
  4. PREDNISON [Concomitant]
     Dosage: 10 MG, DAILY
     Route: 065

REACTIONS (1)
  - DEATH [None]
